FAERS Safety Report 21157855 (Version 5)
Quarter: 2023Q1

REPORT INFORMATION
  Report Type: Report from Study
  Country: EG (occurrence: EG)
  Receive Date: 20220801
  Receipt Date: 20230114
  Transmission Date: 20230417
  Serious: Yes (Other)
  Sender: FDA-Public Use
  Company Number: EG-NOVARTISPH-NVSC2022EG172695

PATIENT
  Age: 56 Year
  Sex: Female

DRUGS (13)
  1. FEMARA [Suspect]
     Active Substance: LETROZOLE
     Indication: Breast cancer metastatic
     Dosage: 1 DOSAGE FORM, QD
     Route: 048
     Dates: start: 2016, end: 202101
  2. AFINITOR [Suspect]
     Active Substance: EVEROLIMUS
     Indication: Breast cancer metastatic
     Dosage: 5 MG, QD ( 1 TABLET FOR 15 DAYS)
     Route: 048
     Dates: start: 202207
  3. AFINITOR [Suspect]
     Active Substance: EVEROLIMUS
     Dosage: 10 MG, QD  ( 5MG 2 TABLET) (ON SEPTMEBER)
     Route: 048
  4. AFINITOR [Suspect]
     Active Substance: EVEROLIMUS
     Dosage: 10 MG (EVERY 2 DAYS ON OCTOBER AND NOVEMBER)
     Route: 065
  5. AFINITOR [Suspect]
     Active Substance: EVEROLIMUS
     Dosage: 5 MG, QD (5MG  ONCE PER DAY FROM DECEMBER TILL NOW. ^AS PER PATIENT^)
     Route: 065
  6. XGEVA [Concomitant]
     Active Substance: DENOSUMAB
     Indication: Metastasis
     Dosage: UNK UNK, Q3MO
     Route: 058
     Dates: start: 2014, end: 2018
  7. XGEVA [Concomitant]
     Active Substance: DENOSUMAB
     Dosage: UNK UNK, QMO
     Route: 065
     Dates: start: 202108
  8. CALCIUM [Concomitant]
     Active Substance: CALCIUM
     Indication: Supplementation therapy
     Dosage: UNK
     Route: 065
  9. PROLIA [Concomitant]
     Active Substance: DENOSUMAB
     Indication: Metastasis
     Dosage: UNK (EVERY 6 MONTH)
     Route: 058
     Dates: start: 2018, end: 2020
  10. AROMASIN [Concomitant]
     Active Substance: EXEMESTANE
     Indication: Breast cancer metastatic
     Dosage: UNK, QD
     Route: 065
     Dates: start: 202108
  11. AROMASIN [Concomitant]
     Active Substance: EXEMESTANE
     Dosage: 1 DOSAGE FORM, QD (1 YEAR OR MORE AGO ^ AS PER PATIENT^)
     Route: 065
  12. IBRANCE [Concomitant]
     Active Substance: PALBOCICLIB
     Indication: Neoplasm
     Dosage: 1 DOSAGE FORM, QD (FOR THREE MONTH)
     Route: 065
  13. FASLODEX [Concomitant]
     Active Substance: FULVESTRANT
     Indication: Product used for unknown indication
     Dosage: UNK
     Route: 065

REACTIONS (4)
  - Second primary malignancy [Not Recovered/Not Resolved]
  - Bone lesion [Recovering/Resolving]
  - Neutrophil count decreased [Recovered/Resolved]
  - White blood cell count decreased [Recovered/Resolved]

NARRATIVE: CASE EVENT DATE: 20210101
